FAERS Safety Report 24416539 (Version 3)
Quarter: 2024Q4

REPORT INFORMATION
  Report Type: Report from Study
  Country: ZA (occurrence: ZA)
  Receive Date: 20241009
  Receipt Date: 20241106
  Transmission Date: 20250115
  Serious: Yes (Other)
  Sender: REGENERON
  Company Number: ZA-BAYER-2024A140845

PATIENT

DRUGS (1)
  1. EYLEA [Suspect]
     Active Substance: AFLIBERCEPT
     Indication: Product used for unknown indication
     Dosage: UNK, 40 MG/ML
     Dates: start: 20240530

REACTIONS (2)
  - Blindness [Unknown]
  - Macular oedema [Unknown]

NARRATIVE: CASE EVENT DATE: 20240826
